FAERS Safety Report 16166716 (Version 2)
Quarter: 2019Q2

REPORT INFORMATION
  Report Type: Spontaneous
  Country: US (occurrence: US)
  Receive Date: 20190407
  Receipt Date: 20190517
  Transmission Date: 20190711
  Serious: Yes (Other)
  Sender: FDA-Public Use
  Company Number: US-BEH-2019100896

PATIENT
  Age: 28 Year
  Sex: Male

DRUGS (2)
  1. HUMAN FACTOR IX (INN) [Suspect]
     Active Substance: COAGULATION FACTOR IX HUMAN
     Indication: FACTOR IX DEFICIENCY
     Route: 065
  2. FACTOR IX RECOMBINANT (INN) [Suspect]
     Active Substance: COAGULATION FACTOR IX RECOMBINANT HUMAN
     Indication: FACTOR IX DEFICIENCY
     Route: 065

REACTIONS (2)
  - Hypersensitivity [Unknown]
  - Anti factor IX antibody positive [Unknown]
